FAERS Safety Report 24278232 (Version 1)
Quarter: 2024Q3

REPORT INFORMATION
  Report Type: Spontaneous
  Country: US (occurrence: None)
  Receive Date: 20240830
  Receipt Date: 20240830
  Transmission Date: 20241016
  Serious: No
  Sender: Public
  Company Number: None

PATIENT
  Age: 80 Year
  Sex: Male

DRUGS (1)
  1. FUROSCIX [Suspect]
     Active Substance: FUROSEMIDE
     Dosage: 80 MG AS NEEDED SUBCUTANEOUS
     Route: 058

REACTIONS (1)
  - Medical device pain [None]

NARRATIVE: CASE EVENT DATE: 20240830
